FAERS Safety Report 6408143-8 (Version None)
Quarter: 2009Q4

REPORT INFORMATION
  Report Type: 
  Country: None (occurrence: None)
  Receive Date: 20091016
  Receipt Date: 20091015
  Transmission Date: 20100525
  Serious: Yes (Hospitalization, Disabling)
  Sender: FDA-Public Use
  Company Number: 2008SP026064

PATIENT
  Age: 60 Year
  Sex: Female
  Weight: 58 kg

DRUGS (4)
  1. PEG-INTRON [Suspect]
     Indication: HEPATITIS C
     Dosage: 80 MCG; QW; SC 60 MCG;QW;SC
     Route: 057
     Dates: start: 20080522, end: 20080612
  2. PEG-INTRON [Suspect]
     Indication: HEPATITIS C
     Dosage: 80 MCG; QW; SC 60 MCG;QW;SC
     Route: 057
     Dates: start: 20080619, end: 20081113
  3. REBETOL [Suspect]
     Indication: HEPATITIS C
     Dosage: 600 MG; QD; PO
     Route: 048
     Dates: start: 20080522, end: 20081119
  4. MYSLEE [Concomitant]

REACTIONS (6)
  - DEHYDRATION [None]
  - DIABETIC KETOACIDOSIS [None]
  - MALAISE [None]
  - METABOLIC ACIDOSIS [None]
  - TYPE 1 DIABETES MELLITUS [None]
  - WEIGHT DECREASED [None]
